FAERS Safety Report 8075695-4 (Version None)
Quarter: 2012Q1

REPORT INFORMATION
  Report Type: 
  Country: None (occurrence: None)
  Receive Date: 20120127
  Receipt Date: 20120120
  Transmission Date: 20120608
  Serious: Yes (Other)
  Sender: FDA-Public Use
  Company Number: US-ASTELLAS-2011US008762

PATIENT
  Sex: Male
  Weight: 81 kg

DRUGS (11)
  1. MYCOPHENOLATE MOFETIL (CELLCEPT) [Concomitant]
     Indication: LIVER TRANSPLANT
     Dosage: 500 MG, UID/QD
     Route: 048
     Dates: start: 20050228
  2. ISOSORBIDE MONONITRATE [Concomitant]
     Indication: CARDIAC DISORDER
     Dosage: 60 MG, UID/QD
     Route: 048
     Dates: start: 20030101
  3. MAGNESIUM OXIDE [Concomitant]
     Indication: BLOOD MAGNESIUM
     Dosage: 400 MG, TID
     Route: 048
     Dates: start: 20080101
  4. DOXAZOSIN [Concomitant]
     Indication: PROSTATIC DISORDER
     Dosage: 8 MG, UID/QD
     Route: 048
     Dates: start: 20080101
  5. ALLOPURINOL [Concomitant]
     Indication: GOUT
     Dosage: 100 MG, UID/QD
     Route: 048
     Dates: start: 20090101
  6. OMEPRAZOLE [Concomitant]
     Indication: GASTROOESOPHAGEAL REFLUX DISEASE
     Dosage: 20 MG, BID
     Route: 048
  7. ASPIRIN [Concomitant]
     Indication: THROMBOSIS PROPHYLAXIS
     Dosage: 81 MG, UID/QD
     Route: 048
     Dates: start: 20030101
  8. PROGRAF [Suspect]
     Indication: LIVER TRANSPLANT
     Dosage: 1.5 MG, UID/QD
     Route: 048
     Dates: start: 20050228
  9. PLAVIX [Concomitant]
     Indication: THROMBOSIS PROPHYLAXIS
     Dosage: 75 MG, UID/QD
     Route: 048
     Dates: start: 20070101
  10. FUROSEMIDE [Concomitant]
     Indication: OEDEMA
     Dosage: 240 MG, UID/QD
     Route: 048
     Dates: start: 20020101
  11. METOPROLOL TARTRATE [Concomitant]
     Indication: BLOOD PRESSURE
     Dosage: 100 MG, BID
     Route: 048
     Dates: start: 20070101

REACTIONS (2)
  - RENAL FAILURE [None]
  - NEUROPATHY PERIPHERAL [None]
